FAERS Safety Report 8017328-9 (Version None)
Quarter: 2012Q1

REPORT INFORMATION
  Report Type: 
  Country: None (occurrence: None)
  Receive Date: 20120102
  Receipt Date: 20111222
  Transmission Date: 20120608
  Serious: Yes (Other)
  Sender: FDA-Public Use
  Company Number: JP-ROCHE-1010581

PATIENT
  Age: 27 Year
  Sex: Male
  Weight: 46 kg

DRUGS (21)
  1. MYCOPHENOLATE MOFETIL (CELLCEPT) [Suspect]
     Indication: PROPHYLAXIS AGAINST TRANSPLANT REJECTION
     Route: 048
     Dates: start: 20060306, end: 20060321
  2. TACROLIMUS [Suspect]
     Indication: PRODUCT USED FOR UNKNOWN INDICATION
     Dosage: DOSAGE- 2.0-4.5 MG
     Route: 048
  3. ISONIAZID [Suspect]
     Indication: PRODUCT USED FOR UNKNOWN INDICATION
     Route: 048
     Dates: end: 20060407
  4. PREDNISOLONE [Concomitant]
     Route: 048
     Dates: start: 20080417, end: 20081023
  5. PRAVASTATIN SODIUM [Concomitant]
     Indication: PROPHYLAXIS
     Route: 048
  6. VALCYTE [Suspect]
     Indication: PRODUCT USED FOR UNKNOWN INDICATION
     Route: 048
     Dates: start: 20060308, end: 20060914
  7. PREDNISOLONE [Concomitant]
     Indication: HEART TRANSPLANT REJECTION
     Dosage: 20-50MG
     Route: 048
     Dates: start: 20060301, end: 20060301
  8. JUVELA [Concomitant]
     Indication: PROPHYLAXIS
     Route: 048
     Dates: end: 20080416
  9. MYCOPHENOLATE MOFETIL (CELLCEPT) [Suspect]
     Route: 048
     Dates: start: 20060818, end: 20061129
  10. PREDNISOLONE [Concomitant]
     Dosage: 2.5-10MG
     Route: 048
     Dates: start: 20060301, end: 20080217
  11. CLARUTE [Concomitant]
     Indication: PROPHYLAXIS
     Route: 048
     Dates: start: 20060915
  12. BUFFERIN (JAPAN) [Concomitant]
     Indication: PROPHYLAXIS
     Route: 048
  13. SULFAMETHOXAZOLE AND TRIMETHOPRIM [Concomitant]
     Indication: PROPHYLAXIS
     Route: 048
  14. ALLOPURINOL [Concomitant]
     Indication: PROPHYLAXIS
     Route: 048
  15. MYCOPHENOLATE MOFETIL (CELLCEPT) [Suspect]
     Route: 048
     Dates: start: 20060322, end: 20060817
  16. ALFAROL [Concomitant]
     Indication: PROPHYLAXIS
     Route: 048
     Dates: start: 20060310
  17. MYCOPHENOLATE MOFETIL (CELLCEPT) [Suspect]
     Route: 048
     Dates: start: 20061130
  18. PREDNISOLONE [Concomitant]
     Indication: PROPHYLAXIS AGAINST TRANSPLANT REJECTION
     Dosage: 2.5-10MG
     Route: 048
     Dates: end: 20060301
  19. OMEPRAZOLE [Concomitant]
     Indication: PROPHYLAXIS
     Route: 048
  20. CINAL [Concomitant]
     Indication: PROPHYLAXIS
     Route: 048
     Dates: end: 20080416
  21. ADALAT [Concomitant]
     Indication: PROPHYLAXIS
     Route: 048
     Dates: start: 20060912, end: 20060912

REACTIONS (4)
  - BLOOD IMMUNOGLOBULIN G DECREASED [None]
  - WHITE BLOOD CELL COUNT DECREASED [None]
  - PANCYTOPENIA [None]
  - BLOOD URIC ACID INCREASED [None]
